FAERS Safety Report 4734668-7 (Version None)
Quarter: 2005Q3

REPORT INFORMATION
  Report Type: 
  Country: None (occurrence: None)
  Receive Date: 20050804
  Receipt Date: 20050309
  Transmission Date: 20060218
  Serious: Yes (Disabling)
  Sender: FDA-Public Use
  Company Number: US-MERCK-0503USA01941

PATIENT
  Age: 66 Year
  Sex: Male
  Weight: 86 kg

DRUGS (2)
  1. VIOXX [Suspect]
     Indication: ARTHRALGIA
     Route: 048
     Dates: start: 20010601, end: 20040901
  2. VIOXX [Suspect]
     Indication: ARTHRITIS
     Route: 048
     Dates: start: 20010601, end: 20040901

REACTIONS (4)
  - ARTHROPATHY [None]
  - CEREBROVASCULAR ACCIDENT [None]
  - MUSCULOSKELETAL DISORDER [None]
  - POLYTRAUMATISM [None]
